FAERS Safety Report 9484500 (Version 1)
Quarter: 2013Q3

REPORT INFORMATION
  Report Type: Spontaneous
  Country: US (occurrence: US)
  Receive Date: 20130828
  Receipt Date: 20130828
  Transmission Date: 20140515
  Serious: Yes (Hospitalization, Other)
  Sender: FDA-Public Use
  Company Number: US-AMGEN-KDL425005

PATIENT
  Age: 76 Year
  Sex: Male

DRUGS (1)
  1. ENBREL [Suspect]
     Indication: RHEUMATOID ARTHRITIS
     Dosage: 50 MG, QWK
     Route: 058
     Dates: start: 20100628, end: 20100705

REACTIONS (6)
  - Chest discomfort [Unknown]
  - Blood pressure increased [Unknown]
  - Chills [Unknown]
  - Injection site rash [Unknown]
  - Pyrexia [Unknown]
  - Rash erythematous [Unknown]
